FAERS Safety Report 6065745-9 (Version None)
Quarter: 2009Q1

REPORT INFORMATION
  Report Type: 
  Country: None (occurrence: None)
  Receive Date: 20090202
  Receipt Date: 20090115
  Transmission Date: 20090719
  Serious: Yes (Other)
  Sender: FDA-Public Use
  Company Number: 8036802

PATIENT
  Age: 36 Year
  Sex: Female

DRUGS (6)
  1. KEPPRA [Suspect]
     Indication: EPILEPSY
     Dosage: 500 MG
     Dates: start: 20040924
  2. VITAMIN TAB [Concomitant]
  3. LEXAPRO [Concomitant]
  4. VITAMIN B COMPLEX CAP [Concomitant]
  5. CLARITIN-D [Concomitant]
  6. FOLIC ACID [Concomitant]

REACTIONS (5)
  - CAESAREAN SECTION [None]
  - DRUG EXPOSURE DURING PREGNANCY [None]
  - NAUSEA [None]
  - OLIGOHYDRAMNIOS [None]
  - VOMITING [None]
